FAERS Safety Report 7757735-2 (Version None)
Quarter: 2011Q3

REPORT INFORMATION
  Report Type: 
  Country: None (occurrence: None)
  Receive Date: 20110916
  Receipt Date: 20110627
  Transmission Date: 20111222
  Serious: No
  Sender: FDA-Public Use
  Company Number: US-ALLERGAN-1108620US

PATIENT
  Age: 81 Year
  Sex: Female

DRUGS (4)
  1. ACUVAIL [Suspect]
     Indication: EYE PRURITUS
     Dosage: 3 GTT, SINGLE
     Route: 047
  2. LUMIGAN [Concomitant]
     Indication: GLAUCOMA
     Dosage: UNK
  3. ALPHAGAN [Concomitant]
     Indication: GLAUCOMA
     Dosage: 6 GTT, SINGLE
  4. ACUVAIL [Suspect]
     Indication: SEASONAL ALLERGY

REACTIONS (1)
  - INTRAOCULAR PRESSURE INCREASED [None]
